FAERS Safety Report 24175695 (Version 1)
Quarter: 2024Q3

REPORT INFORMATION
  Report Type: Report from Study
  Country: US (occurrence: US)
  Receive Date: 20240805
  Receipt Date: 20240805
  Transmission Date: 20241017
  Serious: Yes (Other)
  Sender: UNKNOWN
  Company Number: US-MTPC-MTDA2024-0015863

PATIENT
  Age: 61 Year
  Sex: Female

DRUGS (2)
  1. RADICAVA ORS [Suspect]
     Active Substance: EDARAVONE
     Indication: Amyotrophic lateral sclerosis
     Dosage: 5 MILLILITER, QD 10 DAYS OUT OF FIRST 14 DAYS OF 28-DAY CYCLE
     Route: 048
  2. RADICAVA ORS [Suspect]
     Active Substance: EDARAVONE
     Indication: Amyotrophic lateral sclerosis
     Dosage: 5 MILLILITER, QD 10 DAYS OUT OF FIRST 14 DAYS OF 28-DAY CYCLE
     Route: 048

REACTIONS (5)
  - Swelling [Not Recovered/Not Resolved]
  - Gait disturbance [Unknown]
  - Dysstasia [Unknown]
  - Muscular weakness [Unknown]
  - Drug ineffective [Unknown]
